FAERS Safety Report 8268064-5 (Version None)
Quarter: 2012Q2

REPORT INFORMATION
  Report Type: 
  Country: None (occurrence: None)
  Receive Date: 20120409
  Receipt Date: 20120330
  Transmission Date: 20120825
  Serious: Yes (Hospitalization)
  Sender: FDA-Public Use
  Company Number: US-UCBSA-049589

PATIENT
  Age: 27 Year
  Sex: Male
  Weight: 86.18 kg

DRUGS (5)
  1. AMINOSALICYLATES [Concomitant]
     Indication: CROHN'S DISEASE
  2. IMMUNOSUPRESSANTS [Concomitant]
     Indication: CROHN'S DISEASE
  3. CIMZIA [Suspect]
     Indication: CROHN'S DISEASE
     Route: 058
     Dates: start: 20110927
  4. ANTIBIOTICS [Concomitant]
     Indication: CROHN'S DISEASE
  5. CORTICOSTEROIDS [Concomitant]
     Indication: CROHN'S DISEASE

REACTIONS (1)
  - CROHN'S DISEASE [None]
